FAERS Safety Report 19573712 (Version 2)
Quarter: 2021Q3

REPORT INFORMATION
  Report Type: Report from Study
  Country: NO (occurrence: NO)
  Receive Date: 20210717
  Receipt Date: 20210930
  Transmission Date: 20211014
  Serious: Yes (Hospitalization, Other)
  Sender: FDA-Public Use
  Company Number: NO-TAKEDA-2021TUS042002

PATIENT
  Age: 73 Year
  Sex: Female

DRUGS (11)
  1. ORFIRIL [Concomitant]
     Active Substance: VALPROATE SODIUM
     Dosage: 150 MILLIGRAM, BID
     Route: 048
     Dates: start: 20191028, end: 20191106
  2. TEDUGLUTIDE [Suspect]
     Active Substance: TEDUGLUTIDE
     Indication: SHORT-BOWEL SYNDROME
     Dosage: 2.4 MILLIGRAM (0.05MG/KG), QD
     Route: 065
     Dates: start: 20180530, end: 20191114
  3. TEDUGLUTIDE [Suspect]
     Active Substance: TEDUGLUTIDE
     Indication: SHORT-BOWEL SYNDROME
     Dosage: 2.4 MILLIGRAM (0.05MG/KG), QD
     Route: 065
     Dates: start: 20180530, end: 20191114
  4. ORFIRIL [Concomitant]
     Active Substance: VALPROATE SODIUM
     Dosage: 450 MILLIGRAM, BID
     Route: 048
     Dates: start: 20191107, end: 20200329
  5. PHOSPHATE [Concomitant]
     Active Substance: UNSPECIFIED INGREDIENT
     Indication: SHORT-BOWEL SYNDROME
     Dosage: 500 MILLIGRAM, BID
     Route: 048
     Dates: start: 20210406
  6. TEDUGLUTIDE [Suspect]
     Active Substance: TEDUGLUTIDE
     Indication: SHORT-BOWEL SYNDROME
     Dosage: 2.4 MILLIGRAM (0.05MG/KG), QD
     Route: 065
     Dates: start: 20180530, end: 20191114
  7. BEHEPAN [Concomitant]
     Indication: SHORT-BOWEL SYNDROME
     Dosage: 2 MILLIGRAM, QD
     Route: 048
     Dates: start: 20210510
  8. KAJOS [Concomitant]
     Active Substance: POTASSIUM CITRATE
     Indication: SHORT-BOWEL SYNDROME
     Dosage: 30 MILLILITER, BID
     Route: 048
     Dates: start: 20210406
  9. ORFIRIL [Concomitant]
     Active Substance: VALPROATE SODIUM
     Indication: EPILEPSY
     Dosage: 600 MILLIGRAM, BID
     Route: 048
     Dates: start: 20200330
  10. TEDUGLUTIDE [Suspect]
     Active Substance: TEDUGLUTIDE
     Indication: SHORT-BOWEL SYNDROME
     Dosage: 2.4 MILLIGRAM (0.05MG/KG), QD
     Route: 065
     Dates: start: 20180530, end: 20191114
  11. IMODIUM [Concomitant]
     Active Substance: LOPERAMIDE HYDROCHLORIDE
     Indication: SHORT-BOWEL SYNDROME
     Dosage: 2 MILLIGRAM, BID
     Route: 048
     Dates: start: 20191114

REACTIONS (2)
  - Device related infection [Recovered/Resolved]
  - Hypothyroidism [Recovered/Resolved]

NARRATIVE: CASE EVENT DATE: 20201130
